FAERS Safety Report 17011696 (Version 3)
Quarter: 2019Q4

REPORT INFORMATION
  Report Type: Report from Study
  Country: BE (occurrence: BE)
  Receive Date: 20191108
  Receipt Date: 20191203
  Transmission Date: 20200122
  Serious: Yes (Life-Threatening, Other)
  Sender: FDA-Public Use
  Company Number: BE-MYLANLABS-2019M1106997

PATIENT
  Age: 76 Year
  Sex: Female
  Weight: 72.4 kg

DRUGS (3)
  1. BEVACIZUMAB. [Suspect]
     Active Substance: BEVACIZUMAB
     Indication: OVARIAN CANCER
     Dosage: 1155 MILLIGRAM, Q3W
     Route: 042
     Dates: start: 20180227
  2. CARBOPLATIN. [Suspect]
     Active Substance: CARBOPLATIN
     Indication: OVARIAN CANCER
     Dosage: 1 DOSAGE FORM, Q3W
     Route: 042
     Dates: start: 20180227
  3. PACLITAXEL. [Suspect]
     Active Substance: PACLITAXEL
     Indication: OVARIAN CANCER
     Dosage: 1 DOSAGE FORM, Q3W
     Route: 042
     Dates: start: 20180227

REACTIONS (17)
  - Taste disorder [Not Recovered/Not Resolved]
  - Fatigue [Not Recovered/Not Resolved]
  - Alopecia [Recovered/Resolved]
  - Malignant pleural effusion [Recovered/Resolved]
  - Decreased appetite [Not Recovered/Not Resolved]
  - Hypertension [Not Recovered/Not Resolved]
  - Hypokalaemia [Recovered/Resolved]
  - Nasal dryness [Recovered/Resolved]
  - Nasopharyngitis [Recovered/Resolved]
  - Peripheral sensory neuropathy [Recovered/Resolved]
  - Diarrhoea [Recovered/Resolved]
  - Myalgia [Not Recovered/Not Resolved]
  - Abdominal hernia [Recovered/Resolved]
  - Pulmonary oedema [Recovered/Resolved]
  - Sinusitis [Not Recovered/Not Resolved]
  - Muscle spasms [Not Recovered/Not Resolved]
  - Respiratory failure [Recovered/Resolved]

NARRATIVE: CASE EVENT DATE: 20180301
